FAERS Safety Report 5067952-0 (Version None)
Quarter: 2006Q3

REPORT INFORMATION
  Report Type: 
  Country: None (occurrence: None)
  Receive Date: 20060731
  Receipt Date: 20060720
  Transmission Date: 20061208
  Serious: Yes (Hospitalization, Other)
  Sender: FDA-Public Use
  Company Number: 2006091478

PATIENT
  Age: 65 Year
  Sex: Female
  Weight: 77.1115 kg

DRUGS (9)
  1. CELEBREX [Suspect]
     Indication: ARTHRITIS
     Dosage: 400 MG (200 MG, 2 IN 1 D), ORAL
     Route: 048
     Dates: start: 20040101, end: 20060601
  2. THYROID TAB [Concomitant]
  3. MULTIVITAMIN [Concomitant]
  4. ESTROGENS (ESTROGENS) [Concomitant]
  5. POTASSIUM (POTASSIUM) [Concomitant]
  6. NEURONTIN [Concomitant]
  7. MAGNESIUM (MAGNESIUM) [Concomitant]
  8. LASIX [Concomitant]
  9. CALCIUM (CALCIUM) [Concomitant]

REACTIONS (3)
  - BLOOD IRON DECREASED [None]
  - GASTRIC HAEMORRHAGE [None]
  - LOSS OF CONSCIOUSNESS [None]
